FAERS Safety Report 24429973 (Version 1)
Quarter: 2024Q4

REPORT INFORMATION
  Report Type: Spontaneous
  Country: FR (occurrence: FR)
  Receive Date: 20241012
  Receipt Date: 20241012
  Transmission Date: 20250115
  Serious: Yes (Death, Other)
  Sender: AMGEN
  Company Number: FR-AMGEN-FRASP2024196649

PATIENT

DRUGS (1)
  1. ADALIMUMAB [Suspect]
     Active Substance: ADALIMUMAB
     Indication: Neurosarcoidosis
     Dosage: UNK
     Route: 065

REACTIONS (10)
  - Death [Fatal]
  - Completed suicide [Fatal]
  - Hepatic cytolysis [Unknown]
  - Neurosarcoidosis [Unknown]
  - Drug effective for unapproved indication [Unknown]
  - Drug ineffective for unapproved indication [Unknown]
  - Infection [Unknown]
  - Neoplasm [Unknown]
  - Myalgia [Unknown]
  - Off label use [Unknown]
